FAERS Safety Report 21619447 (Version 4)
Quarter: 2022Q4

REPORT INFORMATION
  Report Type: Report from Study
  Country: PT (occurrence: PT)
  Receive Date: 20221121
  Receipt Date: 20221222
  Transmission Date: 20230113
  Serious: Yes (Other)
  Sender: FDA-Public Use
  Company Number: PT-ABBVIE-4205650

PATIENT
  Age: 78 Year
  Sex: Male

DRUGS (9)
  1. CARBIDOPA\LEVODOPA [Suspect]
     Active Substance: CARBIDOPA\LEVODOPA
     Indication: Parkinson^s disease
     Dosage: 20 MG + 5 MG?FREQUENCY TEXT: MORN:13CC;MAINT:4.9CC/H;EXTRA:1CC
     Route: 050
     Dates: start: 20220217
  2. CARBIDOPA\LEVODOPA [Suspect]
     Active Substance: CARBIDOPA\LEVODOPA
     Dosage: 20 MG + 5 MG?FREQUENCY TEXT: MORN:17CC;MAINT:6.2CC/H;EXTRA:3.5CC
     Route: 050
     Dates: start: 20221115
  3. CARBIDOPA\LEVODOPA [Suspect]
     Active Substance: CARBIDOPA\LEVODOPA
     Dosage: 20 MG + 5 MG?FREQUENCY TEXT: MORN:17CC;MAINT: 6.2CC TO 6.1CC.
     Route: 050
  4. CYANOCOBALAMIN [Concomitant]
     Active Substance: CYANOCOBALAMIN
     Indication: Product used for unknown indication
     Dosage: FORM STRENGTH: 1 MILLIGRAM?FREQUENCY TEXT: AT BREAKFAST ?START DATE TEXT: BEFORE DUODOPA
  5. ACETAZOLAMIDE [Concomitant]
     Active Substance: ACETAZOLAMIDE
     Indication: Product used for unknown indication
     Dosage: 2 TABLET?FORM STRENGTH: 125 MILLIGRAM ?FREQUENCY TEXT: 1 AT BREAKFAST + 1 AT DINNER?START DATE TE...
  6. CLONAZEPAM [Concomitant]
     Active Substance: CLONAZEPAM
     Indication: Product used for unknown indication
     Dosage: 2 TABLET?FORM STRENGTH: 1 MILLIGRAM?FREQUENCY TEXT: 1 AT BREAKFAST + 1 AT BEDTIME?START DATE TEXT...
  7. ATROPINE [Concomitant]
     Active Substance: ATROPINE
     Indication: Product used for unknown indication
     Dosage: FORM STRENGTH: 10 MILLIGRAM/MILLILITERS ?FREQUENCY TEXT: 2 DROPS TO LUNCH + 1 DROP AT DINNER?STAR...
  8. ESCITALOPRAM [Concomitant]
     Active Substance: ESCITALOPRAM OXALATE
     Indication: Product used for unknown indication
     Dosage: 1 TABLET?FORM STRENGTH: 10 MILLIGRAM?FREQUENCY TEXT: AT BREAKFAST ?START DATE TEXT: BEFORE DUODOPA
  9. FOLIC ACID [Concomitant]
     Active Substance: FOLIC ACID
     Indication: Product used for unknown indication
     Dosage: 1 TABLET?FORM STRENGTH: 5 MILLIGRAM?FREQUENCY TEXT: AT BREAKFAST ?START DATE TEXT: BEFORE DUODOPA

REACTIONS (2)
  - Weight decreased [Recovering/Resolving]
  - Granuloma [Not Recovered/Not Resolved]

NARRATIVE: CASE EVENT DATE: 20221115
